FAERS Safety Report 9841875 (Version 1)
Quarter: 2013Q4

REPORT INFORMATION
  Report Type: Spontaneous
  Country: US (occurrence: None)
  Receive Date: 20131211
  Receipt Date: 20131211
  Transmission Date: 20140711
  Serious: Yes (Other)
  Sender: FDA-Public Use
  Company Number: TKT01200600189

PATIENT
  Age: 16 Year
  Sex: Male
  Weight: 89.5 kg

DRUGS (1)
  1. IDURSULFASE [Suspect]
     Indication: MUCOPOLYSACCHARIDOSIS II
     Dosage: 42 MG, 1 IN 1 WK, INTRAVENOUS
     Route: 041
     Dates: start: 20061006

REACTIONS (6)
  - Rash [None]
  - Urticaria [None]
  - Flushing [None]
  - Pruritus [None]
  - Pyrexia [None]
  - Infusion related reaction [None]
